FAERS Safety Report 8783035 (Version 1)
Quarter: 2012Q4

REPORT INFORMATION
  Report Type: Report from Study
  Country: US (occurrence: US)
  Receive Date: 20120913
  Receipt Date: 20120913
  Transmission Date: 20130627
  Serious: No
  Sender: FDA-Public Use
  Company Number: US-VERTEX PHARMACEUTICAL INC.-AE-2012-009682

PATIENT
  Age: 36 Year
  Sex: Male

DRUGS (3)
  1. INCIVEK [Suspect]
     Indication: HEPATITIS C
     Route: 048
     Dates: start: 20120515
  2. RIBAPAK [Concomitant]
     Indication: HEPATITIS C
  3. PEGASYS PROCLICK [Concomitant]
     Indication: HEPATITIS C

REACTIONS (4)
  - Fatigue [Unknown]
  - Pruritus [Unknown]
  - Haemorrhoids [Unknown]
  - Proctalgia [Unknown]
